FAERS Safety Report 13382412 (Version 2)
Quarter: 2017Q2

REPORT INFORMATION
  Report Type: Spontaneous
  Country: JP (occurrence: JP)
  Receive Date: 20170329
  Receipt Date: 20170410
  Transmission Date: 20170830
  Serious: Yes (Death, Other)
  Sender: FDA-Public Use
  Company Number: JP-GLAXOSMITHKLINE-JP2017JPN042627

PATIENT
  Age: 78 Year
  Sex: Male
  Weight: 39 kg

DRUGS (5)
  1. PL [Concomitant]
     Active Substance: ACETAMINOPHEN\CAFFEINE\PROMETHAZINE\SALICYLAMIDE
     Dosage: UNK
  2. LENDORMIN [Concomitant]
     Active Substance: BROTIZOLAM
     Dosage: UNK
  3. BISONO TAPE [Concomitant]
     Dosage: UNK
  4. ANORO ELLIPTA [Suspect]
     Active Substance: UMECLIDINIUM BROMIDE\VILANTEROL TRIFENATATE
     Dosage: 1 DF, QD
     Route: 055
     Dates: start: 20170314
  5. SENNOSIDE TABLETS [Concomitant]
     Dosage: UNK

REACTIONS (2)
  - Death [Fatal]
  - Palpitations [Unknown]

NARRATIVE: CASE EVENT DATE: 20170316
